FAERS Safety Report 8313770-7 (Version None)
Quarter: 2012Q2

REPORT INFORMATION
  Report Type: 
  Country: None (occurrence: None)
  Receive Date: 20120426
  Receipt Date: 20110808
  Transmission Date: 20120825
  Serious: Yes (Other)
  Sender: FDA-Public Use
  Company Number: US-TEVA-US021104

PATIENT
  Age: 73 Year
  Sex: Female

DRUGS (3)
  1. EFFEXOR [Concomitant]
     Dosage: 150 MILLIGRAM;
     Route: 065
  2. PROVIGIL [Suspect]
     Dosage: 200 MILLIGRAM;
     Route: 048
     Dates: start: 20060927, end: 20070803
  3. ATIVAN [Concomitant]
     Dosage: 3 MILLIGRAM;
     Route: 065

REACTIONS (1)
  - HALLUCINATION [None]
